FAERS Safety Report 12237677 (Version 1)
Quarter: 2016Q2

REPORT INFORMATION
  Report Type: Spontaneous
  Country: RS (occurrence: RS)
  Receive Date: 20160405
  Receipt Date: 20160405
  Transmission Date: 20160815
  Serious: Yes (Hospitalization)
  Sender: FDA-Public Use
  Company Number: RS-ACTAVIS-2016-07078

PATIENT
  Age: 54 Year
  Sex: Female
  Weight: 56 kg

DRUGS (1)
  1. EPICA [Suspect]
     Active Substance: PREGABALIN
     Indication: ANALGESIC THERAPY
     Dosage: 2 DF, DAILY
     Route: 048
     Dates: start: 20160103, end: 20160303

REACTIONS (7)
  - Vision blurred [Recovering/Resolving]
  - Urinary retention [Recovering/Resolving]
  - Gait disturbance [Recovering/Resolving]
  - Hyperhidrosis [Recovering/Resolving]
  - Malaise [Recovering/Resolving]
  - Renal pain [Recovering/Resolving]
  - Tremor [Recovering/Resolving]

NARRATIVE: CASE EVENT DATE: 20160103
